FAERS Safety Report 8484037-1 (Version None)
Quarter: 2012Q2

REPORT INFORMATION
  Report Type: 
  Country: None (occurrence: None)
  Receive Date: 20120627
  Receipt Date: 20120627
  Transmission Date: 20120825
  Serious: No
  Sender: FDA-Public Use
  Company Number: None

PATIENT
  Age: 68 Year
  Sex: Male

DRUGS (9)
  1. REVLIMID [Suspect]
     Indication: MULTIPLE MYELOMA
     Dosage: 15MG, QDX21D/28D, DAILY
     Dates: start: 20101101, end: 20120601
  2. ZOVIRAX [Concomitant]
  3. METFORMIN HCL [Concomitant]
  4. ACARBOSE [Concomitant]
  5. FLONASE [Concomitant]
  6. AZELASTINE [Concomitant]
  7. GLIPIZIDE [Concomitant]
  8. SINGULAIR [Concomitant]
  9. ZOCOR [Concomitant]

REACTIONS (1)
  - NEUTROPENIA [None]
